FAERS Safety Report 14184415 (Version 2)
Quarter: 2017Q4

REPORT INFORMATION
  Report Type: Report from Study
  Country: FR (occurrence: FR)
  Receive Date: 20171113
  Receipt Date: 20171208
  Transmission Date: 20180321
  Serious: Yes (Death, Hospitalization)
  Sender: FDA-Public Use
  Company Number: FR-PFIZER INC-2017482768

PATIENT
  Age: 63 Year
  Sex: Male
  Weight: 65.6 kg

DRUGS (22)
  1. SUNITINIB MALATE. [Suspect]
     Active Substance: SUNITINIB MALATE
     Dosage: 37.5 MG ONCE DAILY (QD) FOR 4 WEEKS AND THEN OFF TREATMENT FOR 2 WEEKS
     Route: 048
     Dates: start: 20171023, end: 20171026
  2. POLYETHYLENE GLYCOL [Concomitant]
     Active Substance: POLYETHYLENE GLYCOLS
     Dosage: 10 G, UNK
     Dates: start: 20170922
  3. OXYCODONE [Concomitant]
     Active Substance: OXYCODONE
     Dosage: 5 MG, UNK
     Dates: start: 20171019
  4. OXYNORMORO [Concomitant]
     Active Substance: OXYCODONE HYDROCHLORIDE
     Dosage: 5 MG, UNK
     Dates: start: 20171019
  5. ACETAMINOPHEN. [Concomitant]
     Active Substance: ACETAMINOPHEN
     Dosage: 500 G, UNK
     Dates: start: 20170825
  6. DUPHALAC [Concomitant]
     Active Substance: LACTULOSE
     Dosage: 2 DF, UNK
     Dates: start: 20171018
  7. CYTOTEC [Concomitant]
     Active Substance: MISOPROSTOL
     Dosage: 200 UG, UNK
     Dates: start: 20171006
  8. ZOLEDRONIC ACID [Concomitant]
     Active Substance: ZOLEDRONIC ACID
     Dosage: 4 MG, UNK
     Dates: start: 20171021, end: 20171021
  9. TRAMADOL HYDROCHLORIDE. [Concomitant]
     Active Substance: TRAMADOL HYDROCHLORIDE
     Dosage: 150 MG, UNK
     Dates: start: 20170922
  10. SUNITINIB MALATE. [Suspect]
     Active Substance: SUNITINIB MALATE
     Indication: METASTATIC RENAL CELL CARCINOMA
     Dosage: 50 MG ONCE DAILY (QD) FOR 4 WEEKS AND THEN OFF TREATMENT FOR 2 WEEKS
     Route: 048
     Dates: start: 20170825, end: 20170922
  11. OXYCODONE [Concomitant]
     Active Substance: OXYCODONE
     Dosage: 25 MG, UNK
     Dates: start: 20171013, end: 20171018
  12. DEBRIDAT [Concomitant]
     Active Substance: TRIMEBUTINE MALEATE
     Dosage: 100 MG, UNK
     Dates: start: 20171013
  13. SOLUPRED [Concomitant]
     Active Substance: PREDNISOLONE
     Dosage: 10 MG, UNK
     Dates: start: 20170815
  14. VOGALENE [Concomitant]
     Active Substance: METOPIMAZINE
     Dosage: 1 DF, UNK
     Route: 048
     Dates: start: 20171006
  15. EDUCTYL [Concomitant]
     Active Substance: POTASSIUM BITARTRATE\SODIUM BICARBONATE
     Dosage: 1 DF, UNK
     Dates: start: 20171018
  16. LANSOPRAZOLE. [Concomitant]
     Active Substance: LANSOPRAZOLE
     Dosage: 15 MG, UNK
     Dates: start: 20171018
  17. BROMAZEPAM [Concomitant]
     Active Substance: BROMAZEPAM
     Dosage: 6 MG, UNK
     Dates: start: 20170922
  18. OXYCODONE [Concomitant]
     Active Substance: OXYCODONE
     Dosage: 20 MG, UNK
     Dates: start: 20171019
  19. SOLUPRED [Concomitant]
     Active Substance: PREDNISOLONE
     Dosage: 20 MG, UNK
     Dates: start: 20171018
  20. PRIMPERAN [Concomitant]
     Active Substance: METOCLOPRAMIDE HYDROCHLORIDE
     Dosage: 10 MG, UNK
     Dates: start: 20171018
  21. TRIMEBUTINE [Concomitant]
     Active Substance: TRIMEBUTINE
     Dosage: 100 MG, UNK
     Dates: start: 20171018
  22. SODIUM BICARBONATE. [Concomitant]
     Active Substance: SODIUM BICARBONATE
     Dosage: UNK
     Route: 048
     Dates: start: 20171006

REACTIONS (1)
  - Asthenia [Recovered/Resolved]

NARRATIVE: CASE EVENT DATE: 20171027
